FAERS Safety Report 15009965 (Version 2)
Quarter: 2018Q3

REPORT INFORMATION
  Report Type: Spontaneous
  Country: US (occurrence: US)
  Receive Date: 20180614
  Receipt Date: 20180708
  Transmission Date: 20181010
  Serious: Yes (Other)
  Sender: FDA-Public Use
  Company Number: US-TEVA-2018-US-903670

PATIENT
  Sex: Female

DRUGS (2)
  1. ANAGRELIDE. [Suspect]
     Active Substance: ANAGRELIDE HYDROCHLORIDE
     Indication: POLYCYTHAEMIA VERA
     Dosage: 2 MILLIGRAM DAILY;
     Route: 065
  2. ANAGRELIDE. [Suspect]
     Active Substance: ANAGRELIDE HYDROCHLORIDE
     Indication: MYELOPROLIFERATIVE NEOPLASM

REACTIONS (3)
  - Polycythaemia vera [Unknown]
  - Myelofibrosis [Unknown]
  - Fatigue [Unknown]
